FAERS Safety Report 8574511 (Version 4)
Quarter: 2012Q4

REPORT INFORMATION
  Report Type: 
  Country: US (occurrence: US)
  Receive Date: 20120522
  Receipt Date: 20121113
  Transmission Date: 20130627
  Serious: Yes (Hospitalization, Other)
  Sender: FDA-Public Use
  Company Number: US-ELI_LILLY_AND_COMPANY-US201205006391

PATIENT
  Sex: Male
  Weight: 96.6 kg

DRUGS (12)
  1. HUMALOG 25% LISPRO, 75% NPL [Suspect]
     Indication: DIABETES MELLITUS
     Dosage: 12 u, bid
     Route: 058
     Dates: start: 20100707
  2. HUMALOG 25% LISPRO, 75% NPL [Suspect]
     Dosage: 10 u, bid
     Route: 058
     Dates: start: 20100620
  3. LEVEMIR [Concomitant]
     Dosage: 55 u, each morning
  4. LEVEMIR [Concomitant]
     Dosage: 50 u, each evening
     Dates: start: 20120418
  5. LISINOPRIL [Concomitant]
     Dosage: 5 mg, qd
     Dates: start: 20110620
  6. DIPROLENE AF [Concomitant]
     Dosage: UNK, qd
     Dates: start: 20120418
  7. LIPITOR [Concomitant]
     Dosage: 20 mg, qd
     Dates: start: 20110620
  8. TENORMIN [Concomitant]
     Dosage: 25 mg, each evening
     Dates: start: 20120517
  9. VIAGRA [Concomitant]
     Dosage: 50 mg, prn
     Dates: start: 20120517
  10. CEFDINIR [Concomitant]
     Dosage: 300 mg, bid
     Dates: start: 20110620
  11. CIPRO [Concomitant]
     Dosage: 500 mg, bid
     Dates: start: 20110525
  12. CLEOCIN [Concomitant]
     Dosage: 300 mg, tid
     Dates: start: 20110525

REACTIONS (5)
  - Diabetic retinopathy [Recovered/Resolved]
  - Appendicectomy [Unknown]
  - Cataract [Unknown]
  - Hypertension [Not Recovered/Not Resolved]
  - Anxiety [Unknown]
